FAERS Safety Report 9287023 (Version 1)
Quarter: 2013Q2

REPORT INFORMATION
  Report Type: Spontaneous
  Country: US (occurrence: US)
  Receive Date: 20130513
  Receipt Date: 20130513
  Transmission Date: 20140414
  Serious: Yes (Hospitalization)
  Sender: FDA-Public Use
  Company Number: US-ELI_LILLY_AND_COMPANY-US201305001591

PATIENT
  Sex: Female

DRUGS (3)
  1. FORTEO [Suspect]
     Indication: OSTEOPOROSIS
     Dosage: UNK
     Dates: start: 20130203, end: 20130405
  2. FORTEO [Suspect]
     Dosage: UNK
     Dates: start: 20130407
  3. PREDNISONE [Concomitant]

REACTIONS (2)
  - Dehydration [Unknown]
  - Renal failure [Unknown]
